FAERS Safety Report 17804277 (Version 1)
Quarter: 2020Q2

REPORT INFORMATION
  Report Type: Spontaneous
  Country: JP (occurrence: JP)
  Receive Date: 20200519
  Receipt Date: 20200519
  Transmission Date: 20200714
  Serious: Yes (Death)
  Sender: FDA-Public Use
  Company Number: JP-UCBSA-2020019478

PATIENT
  Age: 57 Year
  Sex: Male
  Weight: 50.5 kg

DRUGS (26)
  1. NARUVEIN [Suspect]
     Active Substance: HYDROMORPHONE HYDROCHLORIDE
     Dosage: 7.2MG DAILY
     Route: 058
     Dates: start: 20200306, end: 20200323
  2. NARUVEIN [Suspect]
     Active Substance: HYDROMORPHONE HYDROCHLORIDE
     Indication: CANCER PAIN
     Dosage: 4.8 MG DAILY
     Route: 058
     Dates: start: 20200304, end: 20200305
  3. LOXOPROFEN [Concomitant]
     Active Substance: LOXOPROFEN
     Dosage: 120 MILLIGRAM, ONCE DAILY (QD)
     Route: 048
     Dates: start: 20200320, end: 20200320
  4. LOXOPROFEN [Concomitant]
     Active Substance: LOXOPROFEN
     Dosage: 180 MILLIGRAM, ONCE DAILY (QD)
     Route: 048
     Dates: start: 20200321, end: 20200322
  5. MAGMITT [Concomitant]
     Active Substance: MAGNESIUM OXIDE
     Indication: PRODUCT USED FOR UNKNOWN INDICATION
     Route: 048
     Dates: end: 20200403
  6. NARUVEIN [Suspect]
     Active Substance: HYDROMORPHONE HYDROCHLORIDE
     Dosage: 9.6MG DAILY
     Route: 058
     Dates: start: 20200324, end: 20200324
  7. FENTOS [Concomitant]
     Active Substance: FENTANYL
     Dosage: 12 MILLIGRAM, ONCE DAILY (QD)
     Dates: start: 20200321, end: 20200322
  8. FENTOS [Concomitant]
     Active Substance: FENTANYL
     Dosage: 4 MILLIGRAM, ONCE DAILY (QD)
     Dates: start: 20200323, end: 20200403
  9. KETALAR [Concomitant]
     Active Substance: KETAMINE HYDROCHLORIDE
     Indication: PRODUCT USED FOR UNKNOWN INDICATION
     Route: 042
     Dates: start: 20200305, end: 20200306
  10. KETALAR [Concomitant]
     Active Substance: KETAMINE HYDROCHLORIDE
     Dosage: 48 MILLIGRAM, ONCE DAILY (QD)
     Route: 042
     Dates: start: 20200307, end: 20200404
  11. NARUVEIN [Suspect]
     Active Substance: HYDROMORPHONE HYDROCHLORIDE
     Dosage: 9.6MG DAILY
     Route: 058
     Dates: start: 20200403, end: 20200404
  12. OXINORM [ASCORBIC ACID;BETACAROTENE;COPPER;GLYCINE MAX EXTRACT;SELENIU [Concomitant]
     Dosage: 60 MILLIGRAM, ONCE DAILY (QD)
     Route: 048
     Dates: start: 20200228, end: 20200228
  13. VIMPAT [Suspect]
     Active Substance: LACOSAMIDE
     Dosage: 200 MG DAILY
     Route: 048
     Dates: start: 20200325, end: 20200403
  14. OXINORM [ASCORBIC ACID;BETACAROTENE;COPPER;GLYCINE MAX EXTRACT;SELENIU [Concomitant]
     Dosage: 30 MILLIGRAM, ONCE DAILY (QD)
     Route: 048
     Dates: start: 20200304, end: 20200304
  15. LOXOPROFEN [Concomitant]
     Active Substance: LOXOPROFEN
     Indication: PRODUCT USED FOR UNKNOWN INDICATION
     Dosage: 180 MILLIGRAM, ONCE DAILY (QD)
     Route: 048
     Dates: end: 20200319
  16. LOXOPROFEN [Concomitant]
     Active Substance: LOXOPROFEN
     Dosage: 60 MILLIGRAM, ONCE DAILY (QD)
     Route: 048
     Dates: start: 20200323, end: 20200323
  17. SYMPROIC [Concomitant]
     Active Substance: NALDEMEDINE
     Indication: PRODUCT USED FOR UNKNOWN INDICATION
     Route: 048
     Dates: end: 20200403
  18. SENNOSIDES. [Concomitant]
     Active Substance: SENNOSIDES
     Indication: PRODUCT USED FOR UNKNOWN INDICATION
     Route: 048
     Dates: start: 20200228, end: 20200229
  19. VIMPAT [Suspect]
     Active Substance: LACOSAMIDE
     Indication: PRODUCT USED FOR UNKNOWN INDICATION
     Dosage: 100MG DAILY
     Route: 048
     Dates: start: 20200323, end: 20200324
  20. NARUVEIN [Suspect]
     Active Substance: HYDROMORPHONE HYDROCHLORIDE
     Dosage: 7.2MG DAILY
     Route: 058
     Dates: start: 20200325, end: 20200402
  21. FENTOS [Concomitant]
     Active Substance: FENTANYL
     Indication: PRODUCT USED FOR UNKNOWN INDICATION
     Dates: end: 20200318
  22. OXINORM [ASCORBIC ACID;BETACAROTENE;COPPER;GLYCINE MAX EXTRACT;SELENIU [Concomitant]
     Indication: PRODUCT USED FOR UNKNOWN INDICATION
     Route: 048
     Dates: end: 20200227
  23. OXINORM [ASCORBIC ACID;BETACAROTENE;COPPER;GLYCINE MAX EXTRACT;SELENIU [Concomitant]
     Dosage: 75 MILLIGRAM, ONCE DAILY (QD)
     Route: 048
     Dates: start: 20200229, end: 20200303
  24. DECADRON [Concomitant]
     Active Substance: DEXAMETHASONE
     Indication: PRODUCT USED FOR UNKNOWN INDICATION
     Route: 048
     Dates: start: 20200304, end: 20200323
  25. FENTOS [Concomitant]
     Active Substance: FENTANYL
     Dosage: 12 MILLIGRAM, ONCE DAILY (QD)
     Dates: start: 20200319, end: 20200319
  26. PREDONINE [PREDNISOLONE ACETATE] [Concomitant]
     Active Substance: PREDNISOLONE ACETATE
     Indication: PRODUCT USED FOR UNKNOWN INDICATION
     Route: 048
     Dates: start: 20200303, end: 20200402

REACTIONS (1)
  - Death [Fatal]

NARRATIVE: CASE EVENT DATE: 20200404
